FAERS Safety Report 11554367 (Version 1)
Quarter: 2015Q3

REPORT INFORMATION
  Report Type: Spontaneous
  Country: US (occurrence: US)
  Receive Date: 20150925
  Receipt Date: 20150925
  Transmission Date: 20151125
  Serious: No
  Sender: FDA-Public Use
  Company Number: US-BAYER-2015-427602

PATIENT
  Age: 66 Year
  Sex: Female
  Weight: 75.28 kg

DRUGS (4)
  1. METFORMIN [Concomitant]
     Active Substance: METFORMIN HYDROCHLORIDE
     Indication: ARTHRALGIA
  2. COZAAR [Concomitant]
     Active Substance: LOSARTAN POTASSIUM
  3. ALEVE [Suspect]
     Active Substance: NAPROXEN SODIUM
     Indication: ARTHRALGIA
  4. LEVODOPA [Concomitant]
     Active Substance: LEVODOPA

REACTIONS (1)
  - Off label use [None]
